FAERS Safety Report 8438697-1 (Version None)
Quarter: 2012Q2

REPORT INFORMATION
  Report Type: 
  Country: None (occurrence: None)
  Receive Date: 20120615
  Receipt Date: 20120601
  Transmission Date: 20120825
  Serious: Yes (Hospitalization)
  Sender: FDA-Public Use
  Company Number: US-ELI_LILLY_AND_COMPANY-US201102003878

PATIENT
  Sex: Female

DRUGS (5)
  1. TYLENOL                                 /SCH/ [Concomitant]
  2. ANTIHYPERTENSIVES [Concomitant]
     Dosage: UNK
  3. FORTEO [Suspect]
     Indication: OSTEOPOROSIS
     Dosage: 20 UG, QD
     Dates: start: 20080801
  4. FORTEO [Suspect]
     Dosage: 20 UG, QD
     Dates: start: 20080801
  5. FORTEO [Suspect]
     Dosage: 20 UG, QD
     Dates: start: 20080801

REACTIONS (9)
  - DIARRHOEA [None]
  - VOMITING [None]
  - DRUG DOSE OMISSION [None]
  - INCORRECT DRUG ADMINISTRATION DURATION [None]
  - HEARING IMPAIRED [None]
  - ANAEMIA [None]
  - DEHYDRATION [None]
  - BLOOD PHOSPHORUS DECREASED [None]
  - BLOOD POTASSIUM DECREASED [None]
